FAERS Safety Report 4695689-6 (Version None)
Quarter: 2005Q2

REPORT INFORMATION
  Report Type: 
  Country: None (occurrence: None)
  Receive Date: 20050616
  Receipt Date: 20050616
  Transmission Date: 20051028
  Serious: No
  Sender: FDA-Public Use
  Company Number: None

PATIENT
  Age: 38 Year
  Sex: Male
  Weight: 102.5129 kg

DRUGS (1)
  1. COLD EEZE DROP LOZENGE QUIGLEY CORP [Suspect]
     Dosage: ONE -1- ORAL
     Route: 048
     Dates: start: 20050614, end: 20050614

REACTIONS (1)
  - DYSGEUSIA [None]
